FAERS Safety Report 6133565-2 (Version None)
Quarter: 2009Q1

REPORT INFORMATION
  Report Type: 
  Country: None (occurrence: None)
  Receive Date: 20090324
  Receipt Date: 20090316
  Transmission Date: 20090719
  Serious: Yes (Life-Threatening, Hospitalization, Other)
  Sender: FDA-Public Use
  Company Number: 2009SP005932

PATIENT
  Age: 43 Year
  Sex: Male

DRUGS (9)
  1. VIRAFERONPEG [Suspect]
     Indication: HEPATITIS C
     Dosage: 100 MCG;QW;SC; 0 MCG;
     Route: 058
     Dates: start: 20080509, end: 20090206
  2. VIRAFERONPEG [Suspect]
     Indication: HEPATITIS C
     Dosage: 100 MCG;QW;SC; 0 MCG;
     Route: 058
     Dates: start: 20090213, end: 20090226
  3. VIRAFERONPEG [Suspect]
     Indication: HEPATITIS C
     Dosage: 100 MCG;QW;SC; 0 MCG;
     Route: 058
     Dates: start: 20090227
  4. REBETOL [Suspect]
     Indication: HEPATITIS C
     Dosage: 1000 MG;QD;PO; PO
     Route: 048
     Dates: start: 20080509, end: 20090213
  5. REBETOL [Suspect]
     Indication: HEPATITIS C
     Dosage: 1000 MG;QD;PO; PO
     Route: 048
     Dates: start: 20081205
  6. XANAX [Suspect]
     Indication: ANXIETY
     Dosage: 1 MG;QD; PO
     Route: 048
     Dates: start: 20081001, end: 20090206
  7. STRESAM (ETIFOXINE) [Suspect]
     Indication: ANXIETY
     Dosage: 2 DF; QD; PO
     Route: 048
     Dates: start: 20090209, end: 20090211
  8. EFFERALGAN CODEINE (PANADELINE CO) [Suspect]
     Indication: PAIN
     Dosage: 1 DF; QD; PO
     Route: 048
     Dates: start: 20090213, end: 20090213
  9. ADALAT [Concomitant]

REACTIONS (17)
  - AMNESIA [None]
  - ANXIETY [None]
  - CONVULSION [None]
  - DEPRESSED LEVEL OF CONSCIOUSNESS [None]
  - DEREALISATION [None]
  - DRUG INTOLERANCE [None]
  - FATIGUE [None]
  - FEELING HOT [None]
  - FEMORAL NECK FRACTURE [None]
  - LOSS OF CONSCIOUSNESS [None]
  - OXYGEN SATURATION DECREASED [None]
  - PAIN [None]
  - PHOTOPHOBIA [None]
  - ROAD TRAFFIC ACCIDENT [None]
  - SLEEP DISORDER [None]
  - SOMNOLENCE [None]
  - TONGUE BITING [None]
